FAERS Safety Report 9555779 (Version 2)
Quarter: 2013Q4

REPORT INFORMATION
  Report Type: Report from Study
  Country: US (occurrence: US)
  Receive Date: 20130926
  Receipt Date: 20131024
  Transmission Date: 20140711
  Serious: Yes (Death)
  Sender: FDA-Public Use
  Company Number: US-ROCHE-1279217

PATIENT
  Sex: Female
  Weight: 59.02 kg

DRUGS (3)
  1. ZELBORAF [Suspect]
     Indication: MALIGNANT MELANOMA
     Route: 065
     Dates: start: 20110901
  2. OXYCODONE/APAP [Concomitant]
     Indication: PAIN
     Dosage: 5/325 MG (1-2 TABELTS AT A TIME) AS NEEDED
     Route: 065
  3. MORPHINE SULFATE EXTENDED RELEASE [Concomitant]
     Indication: PAIN
     Route: 048

REACTIONS (1)
  - Brain neoplasm [Fatal]
